FAERS Safety Report 4872762-0 (Version None)
Quarter: 2005Q4

REPORT INFORMATION
  Report Type: 
  Country: None (occurrence: None)
  Receive Date: 20051230
  Receipt Date: 20051116
  Transmission Date: 20060501
  Serious: Yes (Other)
  Sender: FDA-Public Use
  Company Number: 1713747/2005/000026

PATIENT
  Sex: Male

DRUGS (1)
  1. PREMIER 1.5% DEX. LM 2.5/3L, 5PK [Suspect]
     Indication: RENAL FAILURE
     Dosage: INTRAPERITONEALLY
     Route: 033
     Dates: start: 20051113

REACTIONS (2)
  - BURNING SENSATION [None]
  - MUSCLE SPASMS [None]
